FAERS Safety Report 23287507 (Version 2)
Quarter: 2024Q1

REPORT INFORMATION
  Report Type: Spontaneous
  Country: GB (occurrence: GB)
  Receive Date: 20231212
  Receipt Date: 20240117
  Transmission Date: 20240410
  Serious: Yes (Disabling, Other)
  Sender: FDA-Public Use
  Company Number: None

PATIENT
  Age: 50 Year
  Sex: Female

DRUGS (1)
  1. VENLAFAXINE [Suspect]
     Active Substance: VENLAFAXINE HYDROCHLORIDE
     Indication: Menopause
     Dosage: 75 MG
     Route: 065
     Dates: start: 20221101, end: 20230320

REACTIONS (15)
  - Product prescribing error [Unknown]
  - Cluster headache [Recovered/Resolved with Sequelae]
  - Electric shock sensation [Recovered/Resolved]
  - Panic attack [Recovered/Resolved with Sequelae]
  - Hypertension [Recovered/Resolved]
  - Sleep terror [Recovered/Resolved]
  - Vision blurred [Recovering/Resolving]
  - Drug ineffective [Unknown]
  - Disturbance in attention [Unknown]
  - Drug withdrawal syndrome [Recovered/Resolved]
  - Suicidal ideation [Unknown]
  - Sick leave [Unknown]
  - Heart rate increased [Unknown]
  - Hyperhidrosis [Unknown]
  - Withdrawal syndrome [Unknown]

NARRATIVE: CASE EVENT DATE: 20221120
